FAERS Safety Report 5823053-2 (Version None)
Quarter: 2008Q3

REPORT INFORMATION
  Report Type: 
  Country: None (occurrence: None)
  Receive Date: 20080725
  Receipt Date: 20070814
  Transmission Date: 20090109
  Serious: No
  Sender: FDA-Public Use
  Company Number: US-AMGEN-KDL034977

PATIENT
  Sex: Male
  Weight: 68.6 kg

DRUGS (5)
  1. PROCRIT [Suspect]
     Indication: ANAEMIA OF MALIGNANT DISEASE
     Route: 058
     Dates: start: 20020901, end: 20030101
  2. MEDROL [Concomitant]
  3. COLCHICINE [Concomitant]
  4. XALATAN [Concomitant]
     Route: 047
  5. UNSPECIFIED MEDICATION [Concomitant]
     Route: 047

REACTIONS (8)
  - ARTHRALGIA [None]
  - ARTHRITIS [None]
  - BREAST SWELLING [None]
  - DIARRHOEA [None]
  - DYSPEPSIA [None]
  - MEDICATION TAMPERING [None]
  - NAUSEA [None]
  - SLEEP DISORDER [None]
